FAERS Safety Report 19221910 (Version 1)
Quarter: 2021Q2

REPORT INFORMATION
  Report Type: Spontaneous
  Country: US (occurrence: US)
  Receive Date: 20210505
  Receipt Date: 20210505
  Transmission Date: 20210717
  Serious: Yes (Disabling)
  Sender: FDA-Public Use
  Company Number: None

PATIENT
  Age: 60 Year
  Sex: Female

DRUGS (2)
  1. HYDROCODONE [Concomitant]
     Active Substance: HYDROCODONE
  2. PREGABALIN. [Suspect]
     Active Substance: PREGABALIN
     Indication: NEURALGIA
     Route: 048
     Dates: start: 20210115, end: 20210315

REACTIONS (6)
  - Burns third degree [None]
  - Peripheral swelling [None]
  - Burns second degree [None]
  - Skin exfoliation [None]
  - Weight increased [None]
  - Adverse drug reaction [None]

NARRATIVE: CASE EVENT DATE: 20210316
